FAERS Safety Report 5137910-6 (Version None)
Quarter: 2006Q4

REPORT INFORMATION
  Report Type: 
  Country: None (occurrence: None)
  Receive Date: 20061030
  Receipt Date: 20060209
  Transmission Date: 20070319
  Serious: No
  Sender: FDA-Public Use
  Company Number: US-GLAXOSMITHKLINE-A0593048A

PATIENT
  Age: 58 Year
  Sex: Male

DRUGS (18)
  1. ADVAIR HFA [Suspect]
     Indication: CHRONIC OBSTRUCTIVE PULMONARY DISEASE
     Dosage: 1PUFF TWICE PER DAY
     Route: 055
     Dates: start: 20050101, end: 20050101
  2. FLONASE [Suspect]
     Indication: DRUG USE FOR UNKNOWN INDICATION
     Route: 045
  3. THEOPHYLLINE [Concomitant]
  4. LASIX [Concomitant]
  5. VERAPAMIL [Concomitant]
  6. DIAZEPAM [Concomitant]
  7. FLEXERIL [Concomitant]
  8. PERCOCET [Concomitant]
  9. LISINOPRIL [Concomitant]
  10. UNKNOWN MEDICATION [Concomitant]
  11. NAPROXIN [Concomitant]
  12. OXYCODONE WITH APAP [Concomitant]
  13. PROZAC [Concomitant]
  14. NITROGLYCERIN [Concomitant]
  15. ALBUTEROL [Concomitant]
  16. QVAR 40 [Concomitant]
  17. FLONASE [Concomitant]
  18. AFRIN [Concomitant]

REACTIONS (2)
  - DYSPNOEA [None]
  - EPISTAXIS [None]
